FAERS Safety Report 6533298-4 (Version None)
Quarter: 2010Q1

REPORT INFORMATION
  Report Type: 
  Country: None (occurrence: None)
  Receive Date: 20100111
  Receipt Date: 20091231
  Transmission Date: 20100710
  Serious: Yes (Life-Threatening)
  Sender: FDA-Public Use
  Company Number: US-MERCK-0911USA04756

PATIENT
  Age: 12 Year
  Sex: Male
  Weight: 51 kg

DRUGS (11)
  1. SINGULAIR [Suspect]
     Indication: ASTHMA
     Route: 048
     Dates: start: 20091007, end: 20091106
  2. SINGULAIR [Suspect]
     Indication: RHINITIS ALLERGIC
     Route: 048
     Dates: start: 20091007, end: 20091106
  3. CLARITIN [Concomitant]
     Indication: RHINITIS ALLERGIC
     Route: 048
  4. ASTELIN [Concomitant]
     Indication: RHINITIS ALLERGIC
     Route: 055
  5. ALBUTEROL [Concomitant]
     Indication: ASTHMA
     Route: 065
  6. RETIN-A [Concomitant]
     Route: 065
  7. BENZACLIN [Concomitant]
     Route: 065
  8. RHINOCORT [Concomitant]
     Indication: RHINITIS ALLERGIC
     Route: 055
  9. SYMBICORT [Concomitant]
     Route: 065
     Dates: start: 20091007, end: 20091101
  10. ATARAX (ALPRAZOLAM) [Concomitant]
     Route: 065
     Dates: start: 20091007, end: 20091101
  11. ADVAIR DISKUS 100/50 [Concomitant]
     Indication: ASTHMA
     Route: 065

REACTIONS (3)
  - DEPRESSION [None]
  - MOOD ALTERED [None]
  - SUICIDAL IDEATION [None]
